FAERS Safety Report 14124735 (Version 5)
Quarter: 2018Q4

REPORT INFORMATION
  Report Type: Spontaneous
  Country: FR (occurrence: FR)
  Receive Date: 20171025
  Receipt Date: 20181011
  Transmission Date: 20190204
  Serious: Yes (Other)
  Sender: FDA-Public Use
  Company Number: FR-AUROBINDO-AUR-APL-2017-42459

PATIENT
  Age: 87 Year
  Sex: Female

DRUGS (14)
  1. AMOXICILLIN. [Concomitant]
     Active Substance: AMOXICILLIN
     Indication: LUNG DISORDER
     Dosage: 3 GRAM, ONCE A DAY
     Route: 051
  2. AMOXICILLIN. [Concomitant]
     Active Substance: AMOXICILLIN
     Indication: PNEUMONITIS
  3. LEVOFLOXACIN 500MG [Suspect]
     Active Substance: LEVOFLOXACIN
     Indication: PNEUMONITIS
  4. ACETYLSALICYLIC ACID [Concomitant]
     Active Substance: ASPIRIN
     Indication: PLATELET AGGREGATION INHIBITION
     Dosage: 75 MILLIGRAM, ONCE A DAY
     Route: 065
  5. LEVOFLOXACIN 500MG [Suspect]
     Active Substance: LEVOFLOXACIN
     Indication: LUNG DISORDER
  6. LEVOFLOXACIN 500MG [Suspect]
     Active Substance: LEVOFLOXACIN
     Indication: ENTEROCOCCAL BACTERAEMIA
     Dosage: 500 MG, TWO TIMES A DAY
     Route: 051
  7. AMOXICILLIN. [Concomitant]
     Active Substance: AMOXICILLIN
     Indication: LUNG DISORDER
  8. ACETYLSALICYLIC ACID [Concomitant]
     Active Substance: ASPIRIN
     Indication: ANTIPLATELET THERAPY
  9. ACETAMINOPHEN. [Concomitant]
     Active Substance: ACETAMINOPHEN
     Indication: ANALGESIC THERAPY
     Dosage: 1 GRAM, 3 TIMES A DAY
     Route: 065
  10. AMOXICILLIN. [Concomitant]
     Active Substance: AMOXICILLIN
     Indication: BACTERAEMIA
     Dosage: UNK
     Route: 051
  11. AMOXICILLIN. [Concomitant]
     Active Substance: AMOXICILLIN
     Indication: ENTEROCOCCAL BACTERAEMIA
  12. AMLODIPINE [Concomitant]
     Active Substance: AMLODIPINE BESYLATE
     Indication: PRODUCT USED FOR UNKNOWN INDICATION
     Dosage: 5 MILLIGRAM, ONCE A DAY
  13. AMLODIPINE [Concomitant]
     Active Substance: AMLODIPINE BESYLATE
     Indication: HYPERTENSION
  14. LEVOFLOXACIN 500MG [Suspect]
     Active Substance: LEVOFLOXACIN
     Indication: CEREBROVASCULAR ACCIDENT

REACTIONS (8)
  - Dysmetria [Recovered/Resolved]
  - Prescribed overdose [Unknown]
  - Ataxia [Recovered/Resolved]
  - Product prescribing error [Unknown]
  - Hypotonia [Recovered/Resolved]
  - Dysarthria [Recovered/Resolved]
  - Gait disturbance [Recovered/Resolved]
  - Cerebellar syndrome [Recovered/Resolved]
